FAERS Safety Report 16100376 (Version 2)
Quarter: 2019Q2

REPORT INFORMATION
  Report Type: Spontaneous
  Country: JP (occurrence: JP)
  Receive Date: 20190321
  Receipt Date: 20190422
  Transmission Date: 20190711
  Serious: Yes (Hospitalization)
  Sender: FDA-Public Use
  Company Number: JP-BAYER-2019-052933

PATIENT
  Age: 8 Decade
  Sex: Male

DRUGS (5)
  1. DIOVAN [Concomitant]
     Active Substance: VALSARTAN
  2. URSO [Concomitant]
     Active Substance: URSODIOL
  3. BAYASPIRIN 100 MG [Suspect]
     Active Substance: ASPIRIN
     Indication: ANGINA PECTORIS
     Dosage: 100 MG, QD
     Route: 048
     Dates: start: 20180101, end: 20190305
  4. CRESTOR [Concomitant]
     Active Substance: ROSUVASTATIN CALCIUM
  5. EFIENT [Concomitant]
     Active Substance: PRASUGREL HYDROCHLORIDE

REACTIONS (4)
  - Alanine aminotransferase increased [Recovering/Resolving]
  - Liver disorder [Recovering/Resolving]
  - Gamma-glutamyltransferase increased [Recovering/Resolving]
  - Aspartate aminotransferase increased [Recovering/Resolving]

NARRATIVE: CASE EVENT DATE: 20181218
